FAERS Safety Report 11211636 (Version 2)
Quarter: 2015Q3

REPORT INFORMATION
  Report Type: Spontaneous
  Country: PT (occurrence: PT)
  Receive Date: 20150623
  Receipt Date: 20150724
  Transmission Date: 20151125
  Serious: Yes (Other)
  Sender: FDA-Public Use
  Company Number: PT-ACTAVIS-2015-12328

PATIENT
  Age: 43 Year
  Sex: Female
  Weight: 63.5 kg

DRUGS (4)
  1. DEXAMETASONA                       /00016001/ [Concomitant]
     Indication: PROPHYLAXIS OF NAUSEA AND VOMITING
     Dosage: 20 MG, DAILY (PREMEDICATION GIVEN AT 2ND CYCLE AND AT 3RD CYCLE OF ADMINISTRATION)
     Route: 042
     Dates: start: 20150526
  2. DOCETAXEL ACTAVIS [Suspect]
     Active Substance: DOCETAXEL
     Indication: BREAST ADENOMA
     Dosage: 170 MG CYCLICAL ( EVERY 21 DAYS, 2ND CYCLE ON 26-MAY-2015, 3RD CYCLE ON 16-JUNE-2015)
     Route: 042
     Dates: start: 20150526
  3. ONDANSETROM                        /00955301/ [Concomitant]
     Indication: PROPHYLAXIS OF NAUSEA AND VOMITING
     Dosage: 8 MG, DAILY
     Route: 042
     Dates: start: 20150526, end: 20150526
  4. PREDNISOLONA                       /00016201/ [Concomitant]
     Indication: ALLERGY PROPHYLAXIS
     Dosage: 20 MG, 3/2 DAYS (PREMEDICATION GIVEN AT 2ND CYCLE AND AT 3RD CYCLE OF ADMINISTRATION)
     Route: 048
     Dates: start: 20150525

REACTIONS (4)
  - Back pain [Recovered/Resolved]
  - Erythema [Recovered/Resolved]
  - Dyspnoea [Recovered/Resolved]
  - Throat tightness [Recovered/Resolved]

NARRATIVE: CASE EVENT DATE: 20150526
